FAERS Safety Report 9404964 (Version 1)
Quarter: 2013Q3

REPORT INFORMATION
  Report Type: Spontaneous
  Country: US (occurrence: US)
  Receive Date: 20130717
  Receipt Date: 20130717
  Transmission Date: 20140515
  Serious: No
  Sender: FDA-Public Use
  Company Number: US-BRISTOL-MYERS SQUIBB COMPANY-18728493

PATIENT
  Age: 75 Year
  Sex: Male

DRUGS (11)
  1. YERVOY [Suspect]
     Indication: METASTATIC MALIGNANT MELANOMA
     Dates: start: 20130321
  2. LEVOTHYROID [Concomitant]
     Dosage: AM
  3. PRILOSEC [Concomitant]
  4. LOSARTAN [Concomitant]
  5. COMPAZINE [Concomitant]
     Dosage: NOT MORE THAN 4 TIMES A DAY
  6. FLUTICASONE [Concomitant]
     Dosage: 2 SPRAYS EACH NOSTRIL
     Route: 045
  7. VITAMIN D [Concomitant]
     Dosage: 1DF:2000
  8. LIPITOR [Concomitant]
     Dosage: 1DF:80 ? 1/2 TABLET AT BEDTIME
  9. NIACIN [Concomitant]
     Dosage: 1DF:500 ?TWO TABLETS AT BEDTIME
  10. OMEGA-3 [Concomitant]
     Dosage: 1DF:1200
  11. ASA [Concomitant]

REACTIONS (1)
  - Blood thyroid stimulating hormone increased [Unknown]
